FAERS Safety Report 6030698-6 (Version None)
Quarter: 2009Q1

REPORT INFORMATION
  Report Type: 
  Country: None (occurrence: None)
  Receive Date: 20090107
  Receipt Date: 20081223
  Transmission Date: 20090719
  Serious: No
  Sender: FDA-Public Use
  Company Number: US-B.I. PHARMACEUTICALS,INC./RIDGEFIELD-2008-BP-19094BP

PATIENT
  Sex: Female

DRUGS (1)
  1. ZANTAC 150 [Suspect]
     Indication: GASTRITIS
     Dosage: 150MG
     Route: 048
     Dates: start: 20081223

REACTIONS (2)
  - DIARRHOEA [None]
  - HYPERHIDROSIS [None]
